FAERS Safety Report 16785153 (Version 2)
Quarter: 2020Q2

REPORT INFORMATION
  Report Type: Spontaneous
  Country: DE (occurrence: DE)
  Receive Date: 20190909
  Receipt Date: 20200623
  Transmission Date: 20200713
  Serious: Yes (Hospitalization, Disabling)
  Sender: FDA-Public Use
  Company Number: DE-ROCHE-2403201

PATIENT
  Sex: Female

DRUGS (1)
  1. KADCYLA [Suspect]
     Active Substance: ADO-TRASTUZUMAB EMTANSINE
     Indication: HER2 POSITIVE BREAST CANCER
     Route: 065
     Dates: start: 2011, end: 20190920

REACTIONS (3)
  - Dyspnoea [Unknown]
  - Focal nodular hyperplasia [Not Recovered/Not Resolved]
  - Hepatopulmonary syndrome [Unknown]

NARRATIVE: CASE EVENT DATE: 2019
